FAERS Safety Report 6966241-4 (Version None)
Quarter: 2010Q3

REPORT INFORMATION
  Report Type: 
  Country: None (occurrence: None)
  Receive Date: 20100903
  Receipt Date: 20100825
  Transmission Date: 20110219
  Serious: Yes (Other)
  Sender: FDA-Public Use
  Company Number: CA-GENENTECH-305934

PATIENT
  Sex: Female

DRUGS (6)
  1. RITUXAN [Suspect]
     Indication: RHEUMATOID ARTHRITIS
     Dosage: 1000 MG, UNK
     Route: 042
     Dates: start: 20100709, end: 20100728
  2. METHOTREXATE [Suspect]
     Indication: RHEUMATOID ARTHRITIS
     Dosage: 20 MG, UNK
     Route: 048
     Dates: end: 20100813
  3. CELEBREX [Concomitant]
     Indication: RHEUMATOID ARTHRITIS
     Dosage: 200 MG, UNK
     Route: 048
  4. MORPHINE [Concomitant]
     Indication: RHEUMATOID ARTHRITIS
     Dosage: 5 MG, UNK
     Route: 048
  5. CALCIUM [Concomitant]
     Indication: RHEUMATOID ARTHRITIS
     Dosage: 600 MG, UNK
     Route: 048
  6. PREGABALIN [Concomitant]
     Indication: PAIN
     Dosage: 150 MG, UNK
     Route: 048

REACTIONS (3)
  - FATIGUE [None]
  - HEPATIC ENZYME INCREASED [None]
  - INFLUENZA [None]
